FAERS Safety Report 4665676-2 (Version None)
Quarter: 2005Q2

REPORT INFORMATION
  Report Type: 
  Country: None (occurrence: None)
  Receive Date: 20050519
  Receipt Date: 20050310
  Transmission Date: 20051028
  Serious: Yes (Other)
  Sender: FDA-Public Use
  Company Number: NL-JNJFOC-20050502489

PATIENT
  Sex: Female

DRUGS (1)
  1. REMICADE [Suspect]
     Indication: CROHN'S DISEASE
     Dosage: 3 - 4 YEAS.
     Route: 042

REACTIONS (5)
  - DISORIENTATION [None]
  - FATIGUE [None]
  - INFLUENZA [None]
  - MOTION SICKNESS [None]
  - NAUSEA [None]
